FAERS Safety Report 11162122 (Version 1)
Quarter: 2015Q2

REPORT INFORMATION
  Report Type: Spontaneous
  Country: US (occurrence: None)
  Receive Date: 20150603
  Receipt Date: 20150603
  Transmission Date: 20150821
  Serious: Yes (Hospitalization)
  Sender: FDA-Public Use
  Company Number: None

PATIENT
  Age: 27 Year
  Sex: Female
  Weight: 70 kg

DRUGS (1)
  1. 5-FU [Suspect]
     Active Substance: FLUOROURACIL

REACTIONS (4)
  - Accidental overdose [None]
  - Incorrect dose administered by device [None]
  - Device computer issue [None]
  - Overdose [None]

NARRATIVE: CASE EVENT DATE: 20150522
